FAERS Safety Report 8764129 (Version 2)
Quarter: 2014Q2

REPORT INFORMATION
  Report Type: Spontaneous
  Country: US (occurrence: US)
  Receive Date: 20120831
  Receipt Date: 20140611
  Transmission Date: 20141212
  Serious: No
  Sender: FDA-Public Use
  Company Number: US-ASTRAZENECA-2011SE51516

PATIENT
  Age: 71 Year
  Sex: Female
  Weight: 72.6 kg

DRUGS (9)
  1. SYMBICORT PMDI [Suspect]
     Indication: CHRONIC OBSTRUCTIVE PULMONARY DISEASE
     Dosage: 80 MCG, TWO TIMES A DAY
     Route: 055
     Dates: start: 201106
  2. NEXIUM [Suspect]
     Indication: GASTROOESOPHAGEAL REFLUX DISEASE
     Route: 048
     Dates: start: 1990
  3. NEXIUM [Suspect]
     Indication: ULCER
     Route: 048
     Dates: start: 1990
  4. ALBUTEROL [Suspect]
     Route: 065
  5. MG [Concomitant]
     Indication: EPIGASTRIC DISCOMFORT
     Route: 048
     Dates: start: 201109
  6. AMBIEN [Concomitant]
     Indication: INSOMNIA
     Route: 048
     Dates: start: 1990
  7. SPIRIVA [Concomitant]
     Indication: CHRONIC OBSTRUCTIVE PULMONARY DISEASE
     Route: 055
  8. NORVASC [Concomitant]
     Indication: HYPERTENSION
     Route: 048
  9. XANTACS [Concomitant]
     Indication: SLEEP DISORDER THERAPY
     Route: 048

REACTIONS (11)
  - Respiratory disorder [Unknown]
  - Chronic obstructive pulmonary disease [Unknown]
  - Cataract [Unknown]
  - Chest pain [Unknown]
  - Mental disorder [Unknown]
  - Epistaxis [Unknown]
  - Gastrooesophageal reflux disease [Unknown]
  - Vomiting [Not Recovered/Not Resolved]
  - Regurgitation [Not Recovered/Not Resolved]
  - Off label use [Unknown]
  - Drug dose omission [Not Recovered/Not Resolved]
